FAERS Safety Report 7742202-2 (Version None)
Quarter: 2011Q3

REPORT INFORMATION
  Report Type: 
  Country: None (occurrence: None)
  Receive Date: 20110907
  Receipt Date: 20110907
  Transmission Date: 20111222
  Serious: Yes (Life-Threatening, Hospitalization)
  Sender: FDA-Public Use
  Company Number: None

PATIENT
  Age: 30 Year
  Sex: Male
  Weight: 72.5755 kg

DRUGS (2)
  1. BACTRIM [Suspect]
     Indication: WOUND INFECTION
     Dosage: ONE TAB BID PO
     Route: 048
     Dates: start: 20110823, end: 20110827
  2. CIPROFLOXACIN [Suspect]
     Indication: SKIN INFECTION
     Dosage: ONE TAB BID BID PO
     Route: 048
     Dates: start: 20110825, end: 20110827

REACTIONS (3)
  - DRUG RASH WITH EOSINOPHILIA AND SYSTEMIC SYMPTOMS [None]
  - TACHYPNOEA [None]
  - TACHYCARDIA [None]
